FAERS Safety Report 7685742-7 (Version None)
Quarter: 2011Q3

REPORT INFORMATION
  Report Type: 
  Country: None (occurrence: None)
  Receive Date: 20110815
  Receipt Date: 20110815
  Transmission Date: 20111222
  Serious: Yes (Life-Threatening)
  Sender: FDA-Public Use
  Company Number: None

PATIENT
  Age: 78 Year
  Sex: Male
  Weight: 79.378 kg

DRUGS (1)
  1. REVLIMID [Suspect]
     Indication: PROSTATE CANCER METASTATIC
     Dates: start: 20110501, end: 20110801

REACTIONS (5)
  - MENTAL STATUS CHANGES [None]
  - CEREBRAL INFARCTION [None]
  - DEMENTIA [None]
  - METASTASES TO CENTRAL NERVOUS SYSTEM [None]
  - CONFUSIONAL STATE [None]
